FAERS Safety Report 5688307-1 (Version None)
Quarter: 2008Q1

REPORT INFORMATION
  Report Type: 
  Country: None (occurrence: None)
  Receive Date: 20080328
  Receipt Date: 20080328
  Transmission Date: 20080703
  Serious: No
  Sender: FDA-Public Use
  Company Number: None

PATIENT
  Age: 64 Year
  Sex: Female
  Weight: 67.1324 kg

DRUGS (4)
  1. SINGULAIR [Suspect]
     Indication: MULTIPLE ALLERGIES
     Dosage: 1 TABLET  EVERY DAY PO;  1 TABLET EVERY DAY PO
     Route: 048
     Dates: start: 20071119, end: 20071219
  2. SINGULAIR [Suspect]
     Indication: MYCOTIC ALLERGY
     Dosage: 1 TABLET  EVERY DAY PO;  1 TABLET EVERY DAY PO
     Route: 048
     Dates: start: 20071119, end: 20071219
  3. SINGULAIR [Suspect]
     Indication: MULTIPLE ALLERGIES
     Dosage: 1 TABLET  EVERY DAY PO;  1 TABLET EVERY DAY PO
     Route: 048
     Dates: start: 20080223, end: 20080327
  4. SINGULAIR [Suspect]
     Indication: MYCOTIC ALLERGY
     Dosage: 1 TABLET  EVERY DAY PO;  1 TABLET EVERY DAY PO
     Route: 048
     Dates: start: 20080223, end: 20080327

REACTIONS (3)
  - ASTHENIA [None]
  - DEPRESSION [None]
  - MOOD ALTERED [None]
